FAERS Safety Report 20635007 (Version 1)
Quarter: 2022Q1

REPORT INFORMATION
  Report Type: Spontaneous
  Country: EG (occurrence: EG)
  Receive Date: 20220325
  Receipt Date: 20220325
  Transmission Date: 20220423
  Serious: Yes (Other)
  Sender: FDA-Public Use
  Company Number: EG-SUN PHARMACEUTICAL INDUSTRIES LTD-2019R1-232204

PATIENT
  Age: 8 Month
  Sex: Female

DRUGS (1)
  1. MINOXIDIL [Suspect]
     Active Substance: MINOXIDIL
     Indication: Hair growth abnormal
     Dosage: 5 PERCENT, DAILY
     Route: 061

REACTIONS (2)
  - Intentional product misuse [Unknown]
  - Hypertrichosis [Recovering/Resolving]
